FAERS Safety Report 8312581-6 (Version None)
Quarter: 2012Q2

REPORT INFORMATION
  Report Type: 
  Country: None (occurrence: None)
  Receive Date: 20120425
  Receipt Date: 20120425
  Transmission Date: 20120825
  Serious: Yes (Hospitalization)
  Sender: FDA-Public Use
  Company Number: None

PATIENT
  Age: 6 Year
  Sex: Female

DRUGS (4)
  1. KAPVAY [Suspect]
     Indication: SLEEP DISORDER
     Dosage: KAPVAY 0.1 MG QAM
  2. KAPVAY [Suspect]
     Indication: MOOD SWINGS
     Dosage: KAPVAY 0.1 MG QAM
  3. KAPVAY [Suspect]
     Indication: ANXIETY
     Dosage: KAPVAY 0.1 MG QAM
  4. CLONIDINE [Concomitant]

REACTIONS (7)
  - FEAR [None]
  - HALLUCINATION, VISUAL [None]
  - MOOD ALTERED [None]
  - CRYING [None]
  - FORMICATION [None]
  - NERVOUSNESS [None]
  - ABNORMAL BEHAVIOUR [None]
